FAERS Safety Report 24587454 (Version 2)
Quarter: 2025Q1

REPORT INFORMATION
  Report Type: Spontaneous
  Country: US (occurrence: US)
  Receive Date: 20241107
  Receipt Date: 20250206
  Transmission Date: 20250409
  Serious: No
  Sender: EMD SERONO INC
  Company Number: US-Merck Healthcare KGaA-2024058262

PATIENT
  Age: 69 Year
  Sex: Female

DRUGS (1)
  1. MAVENCLAD [Suspect]
     Active Substance: CLADRIBINE
     Indication: Multiple sclerosis
     Dates: start: 20241016

REACTIONS (8)
  - Headache [Unknown]
  - Diarrhoea [Unknown]
  - Gait disturbance [Unknown]
  - Condition aggravated [Unknown]
  - Visual impairment [Unknown]
  - Abdominal pain [Unknown]
  - Fatigue [Unknown]
  - Pain [Unknown]
